FAERS Safety Report 16172910 (Version 1)
Quarter: 2019Q2

REPORT INFORMATION
  Report Type: Spontaneous
  Country: NL (occurrence: NL)
  Receive Date: 20190409
  Receipt Date: 20190409
  Transmission Date: 20190711
  Serious: Yes (Other)
  Sender: FDA-Public Use
  Company Number: NL-ACCORD-119266

PATIENT
  Age: 82 Year
  Sex: Male
  Weight: 98 kg

DRUGS (5)
  1. FUROSEMIDE. [Concomitant]
     Active Substance: FUROSEMIDE
  2. ADALAT [Concomitant]
     Active Substance: NIFEDIPINE
  3. ASCAL BRISPER CARDIO-NEURO [Concomitant]
     Active Substance: ASPIRIN\CARBASPIRIN CALCIUM
  4. COVEREX [Concomitant]
     Active Substance: PERINDOPRIL ERBUMINE
  5. SPIRONOLACTONE. [Suspect]
     Active Substance: SPIRONOLACTONE
     Indication: CARDIAC DISORDER
     Dosage: 1 PIECE PER DAY
     Dates: start: 20180710, end: 20180730

REACTIONS (1)
  - Monoplegia [Recovered/Resolved]

NARRATIVE: CASE EVENT DATE: 20180717
